FAERS Safety Report 5355347-1 (Version None)
Quarter: 2007Q2

REPORT INFORMATION
  Report Type: 
  Country: None (occurrence: None)
  Receive Date: 20070611
  Receipt Date: 20070601
  Transmission Date: 20071010
  Serious: Yes (Hospitalization)
  Sender: FDA-Public Use
  Company Number: 2006BI001352

PATIENT
  Age: 44 Year
  Sex: Female

DRUGS (2)
  1. AVONEX [Suspect]
     Indication: MULTIPLE SCLEROSIS
     Dosage: 30 UG; QW; IM
     Route: 030
     Dates: start: 20020521
  2. AVONEX [Suspect]
     Indication: MULTIPLE SCLEROSIS
     Dosage: 30 UG; QW; IM
     Route: 030
     Dates: start: 20050119

REACTIONS (9)
  - ABASIA [None]
  - CONDITION AGGRAVATED [None]
  - DEVICE FAILURE [None]
  - MUSCLE SPASMS [None]
  - PROGRESSIVE MULTIPLE SCLEROSIS [None]
  - ROAD TRAFFIC ACCIDENT [None]
  - SCIATICA [None]
  - SECONDARY PROGRESSIVE MULTIPLE SCLEROSIS [None]
  - VERTEBRAL INJURY [None]
